FAERS Safety Report 9727661 (Version 2)
Quarter: 2013Q4

REPORT INFORMATION
  Report Type: Spontaneous
  Country: AR (occurrence: AR)
  Receive Date: 20131203
  Receipt Date: 20131203
  Transmission Date: 20140711
  Serious: Yes (Hospitalization, Other)
  Sender: FDA-Public Use
  Company Number: PHHY2013AR137965

PATIENT
  Sex: Male

DRUGS (4)
  1. LIORESAL [Suspect]
     Indication: HEMIPLEGIA
     Dosage: 4 DF, DAILY
     Route: 048
     Dates: start: 2008
  2. LIORESAL [Suspect]
     Dosage: 3 DF,  DAILY
     Route: 048
     Dates: start: 201311
  3. TRILEPTAL / GP 47680 / TRI 476B [Suspect]
     Indication: HEMIPLEGIA
     Dosage: 3 DF/DAY
     Route: 048
  4. NEURIL//DIAZEPAM [Concomitant]
     Dosage: UNK UKN, UNK

REACTIONS (8)
  - Gastroenteritis [Recovered/Resolved]
  - Gastritis [Recovered/Resolved]
  - Depression [Recovering/Resolving]
  - General physical health deterioration [Unknown]
  - Motor dysfunction [Not Recovered/Not Resolved]
  - Gait disturbance [Not Recovered/Not Resolved]
  - Condition aggravated [Not Recovered/Not Resolved]
  - Muscle spasticity [Unknown]
